FAERS Safety Report 20074092 (Version 1)
Quarter: 2021Q4

REPORT INFORMATION
  Report Type: Spontaneous
  Country: US (occurrence: US)
  Receive Date: 20211116
  Receipt Date: 20211116
  Transmission Date: 20220303
  Serious: No
  Sender: FDA-Public Use
  Company Number: US-ORGANON-O2111USA000845

PATIENT
  Age: 13 Year
  Sex: Female
  Weight: 53.524 kg

DRUGS (7)
  1. NEXPLANON [Suspect]
     Active Substance: ETONOGESTREL
     Indication: Contraception
     Dosage: 1 IMPLANT FOR 3 YEARS IN LEFT ARM
     Route: 059
     Dates: start: 20211025
  2. METHYL PHENIDATE [METHYLPHENIDATE] [Concomitant]
     Dosage: UNK
  3. NALTREXONE [Concomitant]
     Active Substance: NALTREXONE
     Dosage: UNK
  4. BANOPHEN [Concomitant]
     Active Substance: DIPHENHYDRAMINE HYDROCHLORIDE
     Dosage: UNK
  5. MELATONIN [Concomitant]
     Active Substance: MELATONIN
     Dosage: UNK
  6. VITAMINS [Concomitant]
     Active Substance: VITAMINS
     Dosage: UNK
  7. IRON\VITAMINS [Concomitant]
     Active Substance: IRON\VITAMINS
     Dosage: UNK

REACTIONS (1)
  - Implant site pruritus [Unknown]

NARRATIVE: CASE EVENT DATE: 20211102
